FAERS Safety Report 5722800-8 (Version None)
Quarter: 2008Q2

REPORT INFORMATION
  Report Type: 
  Country: None (occurrence: None)
  Receive Date: 20080429
  Receipt Date: 20080114
  Transmission Date: 20081010
  Serious: No
  Sender: FDA-Public Use
  Company Number: US-ASTRAZENECA-2008UW00971

PATIENT
  Age: 86 Year
  Sex: Female
  Weight: 61.2 kg

DRUGS (2)
  1. NEXIUM [Suspect]
     Route: 048
  2. DYAZIDE [Concomitant]

REACTIONS (1)
  - OSTEOPOROSIS [None]
